FAERS Safety Report 19420818 (Version 1)
Quarter: 2021Q2

REPORT INFORMATION
  Report Type: Spontaneous
  Country: NL (occurrence: NL)
  Receive Date: 20210615
  Receipt Date: 20210615
  Transmission Date: 20210717
  Serious: Yes (Other)
  Sender: FDA-Public Use
  Company Number: NL-MYLANLABS-2021M1034567

PATIENT
  Age: 24 Year
  Sex: Female
  Weight: 120 kg

DRUGS (5)
  1. RIFADIN [Concomitant]
     Active Substance: RIFAMPIN
     Dosage: 300 MILLIGRAM CAPSULE, 300 MG (MILLIGRAM)
  2. CLINDAMYCIN. [Suspect]
     Active Substance: CLINDAMYCIN
     Indication: PRODUCT USED FOR UNKNOWN INDICATION
     Dosage: 2X 2 PIECES
     Dates: start: 202101
  3. RIFADIN [Suspect]
     Active Substance: RIFAMPIN
     Indication: PRODUCT USED FOR UNKNOWN INDICATION
     Dosage: 2X 2 PIECES
     Dates: start: 20210101
  4. CLINDAMYCINE                       /00166001/ [Concomitant]
     Active Substance: CLINDAMYCIN
     Dosage: 300 MILLIGRAM CAPSULE, 300 MG (MILLIGRAM)
  5. PFIZER?BIONTECH COVID?19 VACCINE [Suspect]
     Active Substance: TOZINAMERAN
     Indication: COVID-19 IMMUNISATION
     Dosage: 1 DOSAGE FORM
     Dates: start: 20210213

REACTIONS (14)
  - Malaise [Not Recovered/Not Resolved]
  - Injection site erythema [Recovered/Resolved]
  - Chills [Recovered/Resolved]
  - Fatigue [Not Recovered/Not Resolved]
  - Myalgia [Recovered/Resolved]
  - Injection site warmth [Recovered/Resolved]
  - Injection site inflammation [Recovered/Resolved]
  - Arthralgia [Recovered/Resolved]
  - Pyrexia [Recovered/Resolved]
  - Nausea [Recovered/Resolved]
  - Headache [Recovered/Resolved]
  - Nephrolithiasis [Not Recovered/Not Resolved]
  - Injection site pain [Recovered/Resolved]
  - Injection site swelling [Recovered/Resolved]

NARRATIVE: CASE EVENT DATE: 20210213
